FAERS Safety Report 8511031-4 (Version None)
Quarter: 2012Q3

REPORT INFORMATION
  Report Type: 
  Country: None (occurrence: None)
  Receive Date: 20120716
  Receipt Date: 20120706
  Transmission Date: 20120928
  Serious: Yes (Other)
  Sender: FDA-Public Use
  Company Number: US-JNJFOC-20120703381

PATIENT
  Sex: Female
  Weight: 40.82 kg

DRUGS (2)
  1. CLONIDINE [Concomitant]
     Indication: SLEEP DISORDER
     Route: 048
  2. CONCERTA [Suspect]
     Indication: ATTENTION DEFICIT/HYPERACTIVITY DISORDER
     Dosage: 72 MG FORMULATION
     Route: 048

REACTIONS (4)
  - DRUG DOSE OMISSION [None]
  - UNDERWEIGHT [None]
  - MENTAL IMPAIRMENT [None]
  - ABNORMAL BEHAVIOUR [None]
